FAERS Safety Report 13159162 (Version 2)
Quarter: 2017Q2

REPORT INFORMATION
  Report Type: Spontaneous
  Country: US (occurrence: US)
  Receive Date: 20170127
  Receipt Date: 20170526
  Transmission Date: 20170830
  Serious: Yes (Death, Hospitalization)
  Sender: FDA-Public Use
  Company Number: US-JNJFOC-20170124077

PATIENT
  Age: 77 Year
  Sex: Male

DRUGS (1)
  1. XARELTO [Suspect]
     Active Substance: RIVAROXABAN
     Indication: PULMONARY EMBOLISM
     Route: 048
     Dates: start: 20150210, end: 20150210

REACTIONS (3)
  - Coronary artery disease [Fatal]
  - Cardiac failure congestive [Fatal]
  - Haematoma [Recovering/Resolving]

NARRATIVE: CASE EVENT DATE: 20150211
